FAERS Safety Report 5008840-5 (Version None)
Quarter: 2006Q2

REPORT INFORMATION
  Report Type: 
  Country: None (occurrence: None)
  Receive Date: 20060518
  Receipt Date: 20060515
  Transmission Date: 20061013
  Serious: Yes (Hospitalization)
  Sender: FDA-Public Use
  Company Number: TPA2006A00387

PATIENT
  Age: 75 Year
  Sex: Male
  Weight: 66.6788 kg

DRUGS (16)
  1. ACTOS [Suspect]
     Indication: DIABETES MELLITUS NON-INSULIN-DEPENDENT
     Dosage: 15 MG, 1 IN 1 D PER ORAL
     Route: 048
     Dates: start: 20020306
  2. PRILOSEC [Concomitant]
  3. PROTONIX [Concomitant]
  4. PLAVIX [Concomitant]
  5. LASIX [Concomitant]
  6. LISINOPRIL [Concomitant]
  7. TOPROL-XL [Concomitant]
  8. POTASSIUM [Concomitant]
  9. QUININE SULFATE [Concomitant]
  10. ALDACTONE [Concomitant]
  11. ARICEPT [Concomitant]
  12. NITRO PATCH (GLYCERYL TRINITRATE) [Concomitant]
  13. COUMADIN [Concomitant]
  14. MULTIVITAMIN [Concomitant]
  15. INSULIN [Concomitant]
  16. LANTUS [Concomitant]

REACTIONS (2)
  - DIARRHOEA [None]
  - PNEUMONIA [None]
